FAERS Safety Report 22355298 (Version 1)
Quarter: 2023Q2

REPORT INFORMATION
  Report Type: Spontaneous
  Country: US (occurrence: None)
  Receive Date: 20230522
  Receipt Date: 20230522
  Transmission Date: 20230722
  Serious: No
  Sender: FDA-Public Use
  Company Number: None

PATIENT
  Sex: Female

DRUGS (1)
  1. VERZENIO [Suspect]
     Active Substance: ABEMACICLIB
     Dosage: OTHER QUANTITY : 1T;?

REACTIONS (3)
  - Platelet count decreased [None]
  - White blood cell count decreased [None]
  - Therapy cessation [None]
